FAERS Safety Report 6462424-0 (Version None)
Quarter: 2009Q4

REPORT INFORMATION
  Report Type: 
  Country: None (occurrence: None)
  Receive Date: 20091130
  Receipt Date: 20091119
  Transmission Date: 20100525
  Serious: Yes (Hospitalization)
  Sender: FDA-Public Use
  Company Number: FR-PFIZER INC-2009299794

PATIENT
  Age: 30 Year
  Sex: Male
  Weight: 63 kg

DRUGS (4)
  1. ZITHROMAX [Suspect]
     Dosage: UNK
  2. CIFLOX [Suspect]
     Dosage: UNK
     Route: 042
     Dates: start: 20090206
  3. MEROPENEM [Suspect]
     Dosage: UNK
     Dates: start: 20090216
  4. TOBRAMYCIN [Suspect]
     Dosage: UNK
     Dates: start: 20090216

REACTIONS (1)
  - SKIN CANDIDA [None]
